FAERS Safety Report 21042779 (Version 1)
Quarter: 2022Q3

REPORT INFORMATION
  Report Type: Spontaneous
  Country: US (occurrence: None)
  Receive Date: 20220704
  Receipt Date: 20220704
  Transmission Date: 20221027
  Serious: Yes (Disabling)
  Sender: FDA-Public Use
  Company Number: None

PATIENT
  Age: 83 Year
  Sex: Female
  Weight: 74.25 kg

DRUGS (1)
  1. MOLNUPIRAVIR [Suspect]
     Active Substance: MOLNUPIRAVIR
     Indication: COVID-19
     Dosage: OTHER QUANTITY : 2 CAPSULE(S);?FREQUENCY : TWICE A DAY;?
     Route: 048
     Dates: start: 20220620, end: 20220625

REACTIONS (8)
  - Dementia Alzheimer^s type [None]
  - Condition aggravated [None]
  - Hallucination, visual [None]
  - Paranoia [None]
  - Crying [None]
  - Fear [None]
  - Abnormal behaviour [None]
  - Tremor [None]

NARRATIVE: CASE EVENT DATE: 20220625
